FAERS Safety Report 7399941-5 (Version None)
Quarter: 2011Q1

REPORT INFORMATION
  Report Type: 
  Country: None (occurrence: None)
  Receive Date: 20110330
  Receipt Date: 20110323
  Transmission Date: 20110831
  Serious: Yes (Life-Threatening, Hospitalization, Disabling, Other)
  Sender: FDA-Public Use
  Company Number: 2010SP036928

PATIENT
  Age: 27 Year
  Sex: Female
  Weight: 104.3273 kg

DRUGS (3)
  1. NUVARING [Suspect]
     Indication: POLYCYSTIC OVARIES
     Dates: start: 20070301, end: 20080415
  2. NUVARING [Suspect]
     Indication: CONTRACEPTION
     Dates: start: 20070301, end: 20080415
  3. METFORMIN [Concomitant]

REACTIONS (42)
  - ACUTE RESPIRATORY FAILURE [None]
  - DYSMENORRHOEA [None]
  - MIGRAINE [None]
  - ISCHAEMIC STROKE [None]
  - HAEMORRHAGIC CEREBRAL INFARCTION [None]
  - PLEURAL EFFUSION [None]
  - HEPATIC STEATOSIS [None]
  - BRAIN OEDEMA [None]
  - JOINT CONTRACTURE [None]
  - LOSS OF CONSCIOUSNESS [None]
  - PARTIAL SEIZURES [None]
  - DEHYDRATION [None]
  - TRANSVERSE SINUS THROMBOSIS [None]
  - FEELING ABNORMAL [None]
  - WEIGHT INCREASED [None]
  - ENCEPHALOMALACIA [None]
  - COMPLEX REGIONAL PAIN SYNDROME [None]
  - BRAIN INJURY [None]
  - SINUSITIS [None]
  - UNEVALUABLE EVENT [None]
  - DISTURBANCE IN ATTENTION [None]
  - IMPAIRED WORK ABILITY [None]
  - NASAL SEPTUM DEVIATION [None]
  - INTRACRANIAL PRESSURE INCREASED [None]
  - FOOT FRACTURE [None]
  - HAEMORRHAGIC TRANSFORMATION STROKE [None]
  - OEDEMA PERIPHERAL [None]
  - CEREBRAL VENTRICLE DILATATION [None]
  - SUBDURAL HAEMATOMA [None]
  - PULMONARY EMBOLISM [None]
  - COMPLEX PARTIAL SEIZURES [None]
  - HEADACHE [None]
  - PNEUMONIA [None]
  - HYPERTENSION [None]
  - SUBARACHNOID HAEMORRHAGE [None]
  - ATELECTASIS [None]
  - SINUS TACHYCARDIA [None]
  - LEUKOCYTOSIS [None]
  - DRUG SCREEN POSITIVE [None]
  - SUPERIOR SAGITTAL SINUS THROMBOSIS [None]
  - ABDOMINAL PAIN [None]
  - HYDROCEPHALUS [None]
